FAERS Safety Report 7984579-9 (Version None)
Quarter: 2011Q4

REPORT INFORMATION
  Report Type: 
  Country: None (occurrence: None)
  Receive Date: 20111216
  Receipt Date: 20111209
  Transmission Date: 20120403
  Serious: Yes (Other)
  Sender: FDA-Public Use
  Company Number: JP-JNJFOC-20111205364

PATIENT
  Sex: Female

DRUGS (3)
  1. LORAZEPAM [Concomitant]
     Route: 048
  2. SEROQUEL [Concomitant]
     Route: 048
  3. RISPERDAL [Suspect]
     Indication: RESTLESSNESS
     Route: 048
     Dates: end: 20111206

REACTIONS (4)
  - ILEUS PARALYTIC [None]
  - DYSURIA [None]
  - TREATMENT NONCOMPLIANCE [None]
  - HYPERPROLACTINAEMIA [None]
